FAERS Safety Report 12574462 (Version 1)
Quarter: 2016Q3

REPORT INFORMATION
  Report Type: Spontaneous
  Country: US (occurrence: US)
  Receive Date: 20160720
  Receipt Date: 20160720
  Transmission Date: 20161109
  Serious: No
  Sender: FDA-Public Use
  Company Number: US-GLAXOSMITHKLINE-US2016102024

PATIENT
  Sex: Female

DRUGS (2)
  1. ASTEROL [Concomitant]
     Indication: PRODUCT USED FOR UNKNOWN INDICATION
     Dosage: UNK
  2. FLONASE [Suspect]
     Active Substance: FLUTICASONE PROPIONATE
     Indication: COUGH
     Dosage: UNK UNK, BID, 2 SPRAYS IN EACH NOSTRIL
     Dates: start: 20160701

REACTIONS (2)
  - Prescribed overdose [Unknown]
  - Off label use [Unknown]
